FAERS Safety Report 13737909 (Version 1)
Quarter: 2017Q3

REPORT INFORMATION
  Report Type: Spontaneous
  Country: US (occurrence: US)
  Receive Date: 20170710
  Receipt Date: 20170710
  Transmission Date: 20171127
  Serious: No
  Sender: FDA-Public Use
  Company Number: US-SAOL THERAPEUTICS-2016SAO00911

PATIENT
  Sex: Male

DRUGS (4)
  1. LIORESAL [Suspect]
     Active Substance: BACLOFEN
     Dosage: 281.70 ?G, \DAY
     Dates: start: 20161018
  2. LIORESAL [Suspect]
     Active Substance: BACLOFEN
     Dosage: 270.26 ?G, \DAY
     Dates: start: 20161018
  3. LIORESAL [Suspect]
     Active Substance: BACLOFEN
     Indication: POST LAMINECTOMY SYNDROME
     Dosage: 260.34 ?G, \DAY
     Dates: start: 20161012, end: 20161018
  4. LIORESAL [Suspect]
     Active Substance: BACLOFEN
     Indication: PAIN
     Dosage: 265.98 ?G, \DAY
     Dates: start: 20161012, end: 20161018

REACTIONS (2)
  - Hypertonia [Unknown]
  - Off label use [Unknown]

NARRATIVE: CASE EVENT DATE: 2016
